FAERS Safety Report 25094770 (Version 2)
Quarter: 2025Q1

REPORT INFORMATION
  Report Type: Spontaneous
  Country: FR (occurrence: FR)
  Receive Date: 20250319
  Receipt Date: 20250328
  Transmission Date: 20250409
  Serious: Yes (Other)
  Sender: TEVA
  Company Number: FR-TEVA-VS-3309796

PATIENT

DRUGS (1)
  1. AZITHROMYCIN [Suspect]
     Active Substance: AZITHROMYCIN
     Indication: Antibiotic therapy
     Route: 048

REACTIONS (4)
  - Angioedema [Unknown]
  - Conjunctivitis [Unknown]
  - Type IV hypersensitivity reaction [Unknown]
  - Drug hypersensitivity [Unknown]
